FAERS Safety Report 19036447 (Version 1)
Quarter: 2021Q1

REPORT INFORMATION
  Report Type: Spontaneous
  Country: US (occurrence: US)
  Receive Date: 20210322
  Receipt Date: 20210322
  Transmission Date: 20210420
  Serious: Yes (Hospitalization, Other)
  Sender: FDA-Public Use
  Company Number: US-BRISTOL-MYERS SQUIBB COMPANY-BMS-2021-026140

PATIENT
  Sex: Female
  Weight: 106.5 kg

DRUGS (2)
  1. ELIQUIS [Suspect]
     Active Substance: APIXABAN
     Indication: PULMONARY EMBOLISM
     Dosage: 5 MILLIGRAM, QD
     Route: 065
     Dates: end: 2020
  2. CARVEDILOL. [Concomitant]
     Active Substance: CARVEDILOL
     Indication: PRODUCT USED FOR UNKNOWN INDICATION
     Dosage: 25 MILLIGRAM, DAILY
     Route: 065

REACTIONS (6)
  - Thrombosis [Unknown]
  - Hypertension [Unknown]
  - Pneumonia [Unknown]
  - Off label use [Unknown]
  - Sepsis [Unknown]
  - Illness [Unknown]

NARRATIVE: CASE EVENT DATE: 2019
